FAERS Safety Report 9196920 (Version 2)
Quarter: 2013Q4

REPORT INFORMATION
  Report Type: Spontaneous
  Country: US (occurrence: US)
  Receive Date: 20130328
  Receipt Date: 20131125
  Transmission Date: 20140711
  Serious: Yes (Other)
  Sender: FDA-Public Use
  Company Number: US-BAYER-2013-038454

PATIENT
  Age: 22 Year
  Sex: Female

DRUGS (6)
  1. YAZ [Suspect]
  2. YASMIN [Suspect]
  3. OCELLA [Suspect]
  4. RANITIDINE [Concomitant]
  5. AZITHROMYCIN [Concomitant]
     Dosage: 250 MG, UNK
  6. HYDROCODONE W/APAP [Concomitant]
     Dosage: 5/500 MG

REACTIONS (5)
  - Gallbladder injury [None]
  - Cholecystitis chronic [None]
  - Pain [None]
  - Injury [None]
  - Pain [None]
